FAERS Safety Report 4301338-9 (Version None)
Quarter: 2004Q1

REPORT INFORMATION
  Report Type: 
  Country: None (occurrence: None)
  Receive Date: 20040223
  Receipt Date: 20030306
  Transmission Date: 20041129
  Serious: Yes (Other)
  Sender: FDA-Public Use
  Company Number: US-GLAXOSMITHKLINE-A0399291A

PATIENT
  Age: 60 Year
  Sex: Female
  Weight: 54.5 kg

DRUGS (7)
  1. NAVELBINE [Suspect]
     Indication: NON-SMALL CELL LUNG CANCER
     Dosage: 34MGM2 WEEKLY
     Route: 042
     Dates: start: 20021125
  2. ATENOLOL [Concomitant]
     Indication: HYPERTENSION
     Dosage: 25MG PER DAY
     Route: 048
  3. ZOCOR [Concomitant]
     Dosage: 20MG WEEKLY
     Route: 048
  4. DECADRON [Concomitant]
     Indication: PROPHYLAXIS
     Dosage: 8MG WEEKLY
     Route: 042
     Dates: start: 20021101
  5. ANZEMET [Concomitant]
     Indication: PROPHYLAXIS
     Dosage: 100MG WEEKLY
     Route: 042
     Dates: start: 20021101
  6. FOSAMAX [Concomitant]
     Indication: OSTEOPOROSIS
     Dosage: 75MG WEEKLY
     Route: 048
  7. CALCIUM + VITAMIN D [Concomitant]
     Indication: OSTEOPOROSIS
     Dosage: 1500MG PER DAY
     Route: 048

REACTIONS (3)
  - ALOPECIA [None]
  - HYPOAESTHESIA [None]
  - PARAESTHESIA [None]
